FAERS Safety Report 4438776-X (Version None)
Quarter: 2004Q3

REPORT INFORMATION
  Report Type: 
  Country: None (occurrence: None)
  Receive Date: 20040901
  Receipt Date: 20040820
  Transmission Date: 20050211
  Serious: Yes (Hospitalization)
  Sender: FDA-Public Use
  Company Number: CH-JNJFOC-20040806962

PATIENT
  Age: 40 Year
  Sex: Male

DRUGS (4)
  1. REMICADE [Suspect]
     Route: 042
  2. IBUPROFEN [Suspect]
     Indication: ARTHRALGIA
     Route: 049
  3. RIMIFON [Concomitant]
     Indication: TUBERCULOSIS
     Route: 049
  4. BENADON [Concomitant]
     Indication: TUBERCULOSIS
     Route: 049

REACTIONS (7)
  - DERMATITIS EXFOLIATIVE [None]
  - DRUG INTERACTION [None]
  - EOSINOPHILIA [None]
  - ERYTHEMA [None]
  - OEDEMA PERIPHERAL [None]
  - POLYARTHRITIS [None]
  - PYREXIA [None]
